FAERS Safety Report 8574785-7 (Version None)
Quarter: 2012Q3

REPORT INFORMATION
  Report Type: 
  Country: None (occurrence: None)
  Receive Date: 20120807
  Receipt Date: 20120705
  Transmission Date: 20120928
  Serious: No
  Sender: FDA-Public Use
  Company Number: US-009507513-1207USA003239

PATIENT

DRUGS (1)
  1. COSOPT [Suspect]
     Dosage: UNK, BID
     Dates: start: 20100101, end: 20100101

REACTIONS (1)
  - DIZZINESS [None]
